FAERS Safety Report 22345281 (Version 1)
Quarter: 2023Q2

REPORT INFORMATION
  Report Type: Spontaneous
  Country: MA (occurrence: MA)
  Receive Date: 20230519
  Receipt Date: 20230519
  Transmission Date: 20230721
  Serious: Yes (Other)
  Sender: FDA-Public Use
  Company Number: MA-PFIZER INC-PV202300085501

PATIENT
  Age: 31 Year
  Sex: Male

DRUGS (1)
  1. ENBREL [Suspect]
     Active Substance: ETANERCEPT
     Indication: Product used for unknown indication
     Dosage: 25 MG, WEEKLY
     Route: 065

REACTIONS (3)
  - Blindness [Recovering/Resolving]
  - Injection site bruising [Not Recovered/Not Resolved]
  - Eye infection [Unknown]
